FAERS Safety Report 23249093 (Version 1)
Quarter: 2023Q4

REPORT INFORMATION
  Report Type: Report from Study
  Country: US (occurrence: US)
  Receive Date: 20231201
  Receipt Date: 20231201
  Transmission Date: 20240109
  Serious: Yes (Hospitalization)
  Sender: FDA-Public Use
  Company Number: US-ABBVIE-5516790

PATIENT
  Age: 71 Year
  Sex: Male

DRUGS (1)
  1. HUMIRA [Suspect]
     Active Substance: ADALIMUMAB
     Indication: Psoriasis
     Dosage: FORM STRENGTH: 40MILLIGRAM,?CITRATE FREE
     Route: 058
     Dates: start: 20211119

REACTIONS (3)
  - Heart rate increased [Unknown]
  - Infection [Unknown]
  - Sepsis [Unknown]

NARRATIVE: CASE EVENT DATE: 20231001
